FAERS Safety Report 9920850 (Version 1)
Quarter: 2014Q1

REPORT INFORMATION
  Report Type: Spontaneous
  Country: US (occurrence: US)
  Receive Date: 20140225
  Receipt Date: 20140225
  Transmission Date: 20141002
  Serious: Yes (Death)
  Sender: FDA-Public Use
  Company Number: US-ROCHE-1355042

PATIENT
  Age: 83 Year
  Sex: Female

DRUGS (2)
  1. XELODA [Suspect]
     Indication: COLON CANCER STAGE IV
     Dosage: 14 DAYS ON AND 14 DAYS OFF
     Route: 048
     Dates: start: 20121213, end: 20140119
  2. TOPROL XL [Concomitant]
     Route: 048

REACTIONS (1)
  - Malignant neoplasm progression [Fatal]
